FAERS Safety Report 8717202 (Version 4)
Quarter: 2012Q4

REPORT INFORMATION
  Report Type: 
  Country: CO (occurrence: CO)
  Receive Date: 20120810
  Receipt Date: 20121123
  Transmission Date: 20130627
  Serious: Yes (Other)
  Sender: FDA-Public Use
  Company Number: PHHY2012CO068849

PATIENT
  Age: 65 Year
  Sex: Female

DRUGS (6)
  1. ACLASTA [Suspect]
     Indication: OSTEOPOROSIS
     Dosage: 5 mg, yearly
     Route: 042
     Dates: start: 20120727
  2. CAPRIMIDA  D [Concomitant]
  3. CITOFLAVONA [Concomitant]
  4. GLUCOSAMINE [Concomitant]
  5. ESZOPICLONE [Concomitant]
  6. LOVASTATIN [Concomitant]

REACTIONS (6)
  - Osteitis [Recovering/Resolving]
  - Pain in jaw [Recovering/Resolving]
  - Jaw disorder [Recovering/Resolving]
  - Periodontal disease [Recovering/Resolving]
  - Abscess jaw [Recovering/Resolving]
  - Influenza [Recovering/Resolving]
